FAERS Safety Report 7283515-0 (Version None)
Quarter: 2011Q1

REPORT INFORMATION
  Report Type: 
  Country: None (occurrence: None)
  Receive Date: 20110209
  Receipt Date: 20110202
  Transmission Date: 20110831
  Serious: Yes (Death)
  Sender: FDA-Public Use
  Company Number: AR-BRISTOL-MYERS SQUIBB COMPANY-15539729

PATIENT

DRUGS (1)
  1. ORENCIA [Suspect]
     Route: 064

REACTIONS (2)
  - TRISOMY 21 [None]
  - INTRA-UTERINE DEATH [None]
